FAERS Safety Report 20631440 (Version 1)
Quarter: 2022Q1

REPORT INFORMATION
  Report Type: Spontaneous
  Country: US (occurrence: None)
  Receive Date: 20220323
  Receipt Date: 20220323
  Transmission Date: 20220423
  Serious: Yes (unspecified)
  Sender: FDA-Public Use
  Company Number: None

PATIENT
  Age: 26 Year
  Sex: Female
  Weight: 57.06 kg

DRUGS (1)
  1. BENZOYL PEROXIDE\CLINDAMYCIN [Suspect]
     Active Substance: BENZOYL PEROXIDE\CLINDAMYCIN
     Indication: Acne
     Dosage: FREQUENCY : TWICE A DAY;?
     Route: 061
     Dates: start: 20220318, end: 20220321

REACTIONS (2)
  - Application site swelling [None]
  - Rash [None]

NARRATIVE: CASE EVENT DATE: 20220323
